FAERS Safety Report 22527427 (Version 1)
Quarter: 2023Q2

REPORT INFORMATION
  Report Type: Spontaneous
  Country: US (occurrence: US)
  Receive Date: 20230606
  Receipt Date: 20230606
  Transmission Date: 20230722
  Serious: Yes (Hospitalization)
  Sender: FDA-Public Use
  Company Number: US-FOUNDATIONCONSUMERHC-2023-US-013532

PATIENT
  Age: 31 Year
  Sex: Male
  Weight: 86.18 kg

DRUGS (4)
  1. ANBESOL MAXIMUM STRENGTH LIQUID [Suspect]
     Active Substance: BENZOCAINE
     Indication: Toothache
     Dosage: USING IT MORE THAN 6 TIMES A DAY
     Route: 048
     Dates: start: 20230515, end: 20230518
  2. UNSPECIFIED INGREDIENT [Suspect]
     Active Substance: UNSPECIFIED INGREDIENT
     Dates: start: 20230514
  3. TYLENOL [Concomitant]
     Active Substance: ACETAMINOPHEN
  4. IBUPROFEN [Concomitant]
     Active Substance: IBUPROFEN

REACTIONS (6)
  - Intentional product misuse [Recovered/Resolved]
  - Swelling face [Not Recovered/Not Resolved]
  - Tenderness [Not Recovered/Not Resolved]
  - Inappropriate schedule of product administration [Recovered/Resolved]
  - Dysphagia [Recovered/Resolved]
  - Tooth infection [Not Recovered/Not Resolved]

NARRATIVE: CASE EVENT DATE: 20230515
